FAERS Safety Report 7268328 (Version 17)
Quarter: 2013Q1

REPORT INFORMATION
  Report Type: Spontaneous
  Country: CA (occurrence: CA)
  Receive Date: 20100202
  Receipt Date: 20130208
  Transmission Date: 20140127
  Serious: Yes (Other)
  Sender: FDA-Public Use
  Company Number: PHHY2009CA58141

PATIENT
  Age: 75 Year
  Sex: Male

DRUGS (2)
  1. ZOMETA [Suspect]
     Indication: PROSTATE CANCER METASTATIC
     Dosage: 3.3 MG, QMO
     Route: 042
     Dates: start: 20091203
  2. ZOMETA [Suspect]
     Dosage: 3.3 MG, EVERY 4 WEEKS
     Route: 042
     Dates: start: 20091203, end: 20120602

REACTIONS (10)
  - Blood testosterone decreased [Unknown]
  - Blood alkaline phosphatase decreased [Unknown]
  - Glomerular filtration rate decreased [Unknown]
  - Blood urea increased [Unknown]
  - Blood creatinine increased [Not Recovered/Not Resolved]
  - Red blood cell count decreased [Unknown]
  - Haemoglobin decreased [Unknown]
  - Haematocrit decreased [Unknown]
  - Blood potassium increased [Unknown]
  - Blood pressure systolic increased [Unknown]
